FAERS Safety Report 7552528-3 (Version None)
Quarter: 2011Q2

REPORT INFORMATION
  Report Type: 
  Country: None (occurrence: None)
  Receive Date: 20110616
  Receipt Date: 20110604
  Transmission Date: 20111010
  Serious: Yes (Hospitalization)
  Sender: FDA-Public Use
  Company Number: US-ELI_LILLY_AND_COMPANY-US201003004420

PATIENT
  Sex: Female

DRUGS (4)
  1. CARDIOVASCULAR SYSTEM DRUGS [Concomitant]
     Indication: BLOOD PRESSURE ABNORMAL
     Dosage: UNK, UNKNOWN
  2. FORTEO [Suspect]
     Dosage: 20 UG, DAILY (1/D)
  3. FORTEO [Suspect]
     Indication: OSTEOPOROSIS
     Dosage: 20 UG, DAILY (1/D)
     Route: 065
     Dates: start: 20091201
  4. FORTEO [Suspect]
     Dosage: 20 UG, DAILY (1/D)

REACTIONS (10)
  - BRONCHITIS [None]
  - INJECTION SITE ERYTHEMA [None]
  - COUGH [None]
  - INJECTION SITE PAIN [None]
  - MUSCLE SPASMS [None]
  - INJECTION SITE HAEMATOMA [None]
  - HORMONE THERAPY [None]
  - ASTHENIA [None]
  - DIZZINESS [None]
  - HEADACHE [None]
